FAERS Safety Report 5095951-1 (Version None)
Quarter: 2006Q3

REPORT INFORMATION
  Report Type: 
  Country: None (occurrence: None)
  Receive Date: 20060905
  Receipt Date: 20060829
  Transmission Date: 20061208
  Serious: Yes (Life-Threatening)
  Sender: FDA-Public Use
  Company Number: KP-BRACCO-BRO-010452

PATIENT
  Age: 56 Year
  Sex: Male

DRUGS (2)
  1. MULTIHANCE [Suspect]
     Dosage: 1 ML/SEC
     Route: 042
     Dates: start: 20060718, end: 20060718
  2. MULTIHANCE [Suspect]
     Indication: NUCLEAR MAGNETIC RESONANCE IMAGING BRAIN
     Dosage: 1 ML/SEC
     Route: 042
     Dates: start: 20060718, end: 20060718

REACTIONS (5)
  - APNOEA [None]
  - DYSPNOEA [None]
  - FAECAL INCONTINENCE [None]
  - MUSCLE SPASMS [None]
  - URINARY INCONTINENCE [None]
